FAERS Safety Report 5535255-3 (Version None)
Quarter: 2007Q4

REPORT INFORMATION
  Report Type: 
  Country: None (occurrence: None)
  Receive Date: 20071206
  Receipt Date: 20071127
  Transmission Date: 20080405
  Serious: Yes (Life-Threatening, Hospitalization, Other)
  Sender: FDA-Public Use
  Company Number: GB-JNJFOC-20070202911

PATIENT
  Sex: Male
  Weight: 85 kg

DRUGS (20)
  1. REOPRO [Suspect]
     Indication: ANGIOPLASTY
     Route: 042
  2. DIGOXIN [Concomitant]
     Indication: BLOOD PRESSURE INCREASED
     Route: 048
  3. DIGOXIN [Concomitant]
     Indication: ATRIAL FIBRILLATION
     Route: 048
  4. ACETYLSALICYLIC ACID SRT [Concomitant]
     Indication: BLOOD PRESSURE INCREASED
     Route: 048
  5. ACETYLSALICYLIC ACID SRT [Concomitant]
     Indication: ATRIAL FIBRILLATION
     Route: 048
  6. ACETYLSALICYLIC ACID SRT [Concomitant]
     Indication: MYOCARDIAL ISCHAEMIA
     Route: 048
  7. CLOPIDOGREL [Concomitant]
  8. CLOPIDOGREL [Concomitant]
     Indication: ACUTE MYOCARDIAL INFARCTION
  9. ENALAPRIL [Concomitant]
     Indication: BLOOD PRESSURE INCREASED
  10. ENALAPRIL [Concomitant]
     Indication: ATRIAL FIBRILLATION
  11. ENALAPRIL [Concomitant]
     Indication: MYOCARDIAL ISCHAEMIA
  12. GTN-S [Concomitant]
     Indication: MYOCARDIAL ISCHAEMIA
     Route: 045
  13. DOXAZOSIN MESYLATE [Concomitant]
     Indication: ATRIAL FIBRILLATION
     Route: 048
  14. DOXAZOSIN MESYLATE [Concomitant]
     Indication: BLOOD PRESSURE INCREASED
     Route: 048
  15. BENDROFLUMETHIAZIDE [Concomitant]
     Indication: ATRIAL FIBRILLATION
     Route: 048
  16. BENDROFLUMETHIAZIDE [Concomitant]
     Indication: BLOOD PRESSURE INCREASED
     Route: 048
  17. SIMVASTATIN [Concomitant]
     Indication: BLOOD CHOLESTEROL INCREASED
  18. LANSOPRAZOLE [Concomitant]
     Indication: HAEMOGLOBIN DECREASED
  19. LANSOPRAZOLE [Concomitant]
     Indication: PLATELET COUNT DECREASED
  20. HYDROXOCOBALAMIN [Concomitant]
     Indication: VITAMIN B12 DEFICIENCY

REACTIONS (5)
  - ANAEMIA [None]
  - CONJUNCTIVAL HAEMORRHAGE [None]
  - CONTUSION [None]
  - EPISTAXIS [None]
  - THROMBOCYTOPENIA [None]
